FAERS Safety Report 13938212 (Version 2)
Quarter: 2017Q4

REPORT INFORMATION
  Report Type: Report from Study
  Country: None (occurrence: US)
  Receive Date: 20170905
  Receipt Date: 20171002
  Transmission Date: 20180320
  Serious: Yes (Hospitalization, Other)
  Sender: FDA-Public Use
  Company Number: US-ABBVIE-17P-163-2089231-00

PATIENT
  Age: 72 Year
  Sex: Male
  Weight: 94.43 kg

DRUGS (20)
  1. VENCLEXTA [Suspect]
     Active Substance: VENETOCLAX
     Route: 048
     Dates: start: 20160609, end: 20160615
  2. VICKS NYQUIL [Concomitant]
     Active Substance: ACETAMINOPHEN\DEXTROMETHORPHAN HYDROBROMIDE\DOXYLAMINE SUCCINATE
     Indication: NASOPHARYNGITIS
     Route: 048
  3. ASPIRIN. [Concomitant]
     Active Substance: ASPIRIN
     Indication: CHEMOTHERAPY
     Route: 048
     Dates: start: 2014
  4. LORAZEPAM. [Concomitant]
     Active Substance: LORAZEPAM
     Indication: ANXIETY
  5. CEFUROXIME. [Concomitant]
     Active Substance: CEFUROXIME
     Indication: NASOPHARYNGITIS
     Route: 048
     Dates: start: 20170712, end: 20170716
  6. VENCLEXTA [Suspect]
     Active Substance: VENETOCLAX
     Route: 048
     Dates: start: 20160623, end: 20170620
  7. PRAVASTATIN. [Concomitant]
     Active Substance: PRAVASTATIN
     Indication: BLOOD CHOLESTEROL
     Route: 048
     Dates: start: 201605
  8. VENCLEXTA [Suspect]
     Active Substance: VENETOCLAX
     Route: 048
     Dates: start: 20160602, end: 20160608
  9. ACYCLOVIR. [Concomitant]
     Active Substance: ACYCLOVIR
     Indication: CHEMOTHERAPY
     Route: 048
     Dates: start: 20160524
  10. FLOMAX [Concomitant]
     Active Substance: TAMSULOSIN HYDROCHLORIDE
     Indication: POLLAKIURIA
     Route: 048
     Dates: start: 2008
  11. RITUXIMAB. [Suspect]
     Active Substance: RITUXIMAB
     Indication: PRODUCT USED FOR UNKNOWN INDICATION
     Route: 065
  12. CEFUROXIME. [Concomitant]
     Active Substance: CEFUROXIME
     Indication: COUGH
  13. MELOXICAM. [Concomitant]
     Active Substance: MELOXICAM
     Indication: BACK PAIN
     Dosage: PRN
     Route: 048
  14. MELOXICAM. [Concomitant]
     Active Substance: MELOXICAM
     Indication: SCIATICA
  15. LORAZEPAM. [Concomitant]
     Active Substance: LORAZEPAM
     Indication: PANIC ATTACK
     Dosage: PRN
     Route: 048
     Dates: start: 2010
  16. CBD OIL [Concomitant]
     Active Substance: CANNABIDIOL
     Indication: NEURALGIA
     Dosage: 3 TO 6 DROPS
  17. VENCLEXTA [Suspect]
     Active Substance: VENETOCLAX
     Route: 048
     Dates: start: 20160616, end: 20160622
  18. DEXTROMETHORPHAN HYDROBROMIDE. [Concomitant]
     Active Substance: DEXTROMETHORPHAN HYDROBROMIDE
     Indication: NASOPHARYNGITIS
     Route: 048
  19. HYDROCHLOROTHIAZIDE. [Concomitant]
     Active Substance: HYDROCHLOROTHIAZIDE
     Indication: BLOOD PRESSURE MEASUREMENT
     Route: 048
     Dates: start: 20170610
  20. VENCLEXTA [Suspect]
     Active Substance: VENETOCLAX
     Indication: CHRONIC LYMPHOCYTIC LEUKAEMIA
     Route: 048
     Dates: start: 20160526, end: 20160601

REACTIONS (16)
  - Asthenia [Unknown]
  - Vertigo [Unknown]
  - Haematocrit abnormal [Unknown]
  - Drug ineffective [Not Recovered/Not Resolved]
  - Platelet count decreased [Unknown]
  - Fall [Unknown]
  - Muscular weakness [Unknown]
  - Micturition urgency [Unknown]
  - Confusional state [Unknown]
  - Immune system disorder [Unknown]
  - Loss of consciousness [Recovered/Resolved]
  - Haemoglobin abnormal [Unknown]
  - Fall [Unknown]
  - Somnolence [Unknown]
  - White blood cell count increased [Unknown]
  - White blood cell count increased [Recovered/Resolved]

NARRATIVE: CASE EVENT DATE: 20170620
